FAERS Safety Report 25188020 (Version 1)
Quarter: 2025Q2

REPORT INFORMATION
  Report Type: Spontaneous
  Country: US (occurrence: US)
  Receive Date: 20250411
  Receipt Date: 20250411
  Transmission Date: 20250717
  Serious: No
  Sender: KINIKSA PHARMACEUTICALS
  Company Number: US-Kiniksa Pharmaceuticals Ltd.-2025KPU000841

PATIENT
  Age: 42 Year
  Sex: Female

DRUGS (1)
  1. ARCALYST [Suspect]
     Active Substance: RILONACEPT
     Indication: Pericarditis
     Route: 058
     Dates: start: 20240216

REACTIONS (8)
  - Product dose omission issue [Unknown]
  - Inappropriate schedule of product administration [Unknown]
  - Dyspnoea [Unknown]
  - Chest pain [Unknown]
  - Pain in extremity [Unknown]
  - Fluid retention [Unknown]
  - Loss of personal independence in daily activities [Unknown]
  - Social problem [Unknown]

NARRATIVE: CASE EVENT DATE: 20250323
